FAERS Safety Report 18985366 (Version 1)
Quarter: 2021Q1

REPORT INFORMATION
  Report Type: Spontaneous
  Country: US (occurrence: US)
  Receive Date: 20210309
  Receipt Date: 20210309
  Transmission Date: 20210420
  Serious: Yes (Hospitalization, Other)
  Sender: FDA-Public Use
  Company Number: US-CIPLA LTD.-2021US01619

PATIENT

DRUGS (1)
  1. ISOPROTERENOL. [Suspect]
     Active Substance: ISOPROTERENOL
     Indication: ATRIOVENTRICULAR BLOCK
     Dosage: UNK

REACTIONS (4)
  - Conduction disorder [Recovered/Resolved]
  - Headache [Recovered/Resolved]
  - Nausea [Recovered/Resolved]
  - Drug ineffective [Unknown]
